FAERS Safety Report 25274360 (Version 1)
Quarter: 2025Q2

REPORT INFORMATION
  Report Type: Report from Study
  Country: CA (occurrence: CA)
  Receive Date: 20250506
  Receipt Date: 20250506
  Transmission Date: 20250717
  Serious: Yes (Death, Other)
  Sender: SANDOZ
  Company Number: CA-SANDOZ-SDZ2025CA028530

PATIENT
  Sex: Male

DRUGS (1)
  1. ZIEXTENZO [Suspect]
     Active Substance: PEGFILGRASTIM-BMEZ
     Indication: Febrile neutropenia
     Route: 058
     Dates: start: 20240405

REACTIONS (1)
  - Death [Fatal]
